FAERS Safety Report 7634274-0 (Version None)
Quarter: 2011Q3

REPORT INFORMATION
  Report Type: 
  Country: None (occurrence: None)
  Receive Date: 20110725
  Receipt Date: 20110718
  Transmission Date: 20111222
  Serious: Yes (Hospitalization, Other)
  Sender: FDA-Public Use
  Company Number: US-BAYER-201021537NA

PATIENT
  Age: 43 Year
  Sex: Male

DRUGS (18)
  1. MORPHINE [Concomitant]
     Indication: PAIN
  2. BETASERON [Suspect]
     Indication: RELAPSING-REMITTING MULTIPLE SCLEROSIS
     Dosage: BETAJECT
     Route: 058
     Dates: start: 20100421
  3. TESTS FOR DIABETES [Concomitant]
     Dosage: AS USED DOSE: UNK
     Route: 065
  4. ANTIDEPRESSANTS [Concomitant]
     Indication: DEPRESSION
  5. OXYCONTIN [Concomitant]
     Indication: BONE PAIN
     Dosage: AS USED DOSE: UNK
     Route: 065
  6. BETASERON [Suspect]
     Indication: SECONDARY PROGRESSIVE MULTIPLE SCLEROSIS
  7. BETASERON [Suspect]
     Indication: MULTIPLE SCLEROSIS
     Dosage: BETAJECT
     Route: 058
     Dates: start: 20100412, end: 20110306
  8. TRAMADOL HCL [Concomitant]
     Dosage: AS USED DOSE: UNK
     Route: 065
  9. TESTS FOR DIABETES [Concomitant]
     Dosage: AS USED DOSE: UNK
     Route: 065
  10. MARIJUANA [Concomitant]
     Indication: DECREASED APPETITE
  11. ZANAFLEX [Concomitant]
     Dosage: AS USED DOSE: UNK
     Route: 065
  12. FAMPRIDINE [Concomitant]
     Dosage: AS USED DOSE: UNK
     Route: 065
  13. GABAPENTIN [Concomitant]
  14. VITAMIN D [Concomitant]
  15. RITUXAN [Concomitant]
     Dosage: UNK
     Dates: start: 20110701
  16. DEPAKOTE [Concomitant]
     Indication: MOOD ALTERED
     Dosage: AS USED DOSE: UNK
     Route: 065
  17. RITUXAN [Concomitant]
     Dosage: UNK
     Dates: start: 20110715
  18. CYTOXAN [Concomitant]

REACTIONS (22)
  - MOBILITY DECREASED [None]
  - MULTIPLE SCLEROSIS [None]
  - GAIT DISTURBANCE [None]
  - DEPRESSION [None]
  - TREMOR [None]
  - MUSCLE SPASMS [None]
  - HYPERSOMNIA [None]
  - HEADACHE [None]
  - IMPAIRED HEALING [None]
  - URINARY INCONTINENCE [None]
  - SPINAL CORD DISORDER [None]
  - FALL [None]
  - HEPATIC ENZYME INCREASED [None]
  - HEAD INJURY [None]
  - VISUAL IMPAIRMENT [None]
  - COORDINATION ABNORMAL [None]
  - NEUROMYELITIS OPTICA [None]
  - INCOHERENT [None]
  - DIARRHOEA [None]
  - HYPOAESTHESIA [None]
  - FEELING COLD [None]
  - HEMIPLEGIA [None]
